FAERS Safety Report 6560527-3 (Version None)
Quarter: 2010Q1

REPORT INFORMATION
  Report Type: 
  Country: None (occurrence: None)
  Receive Date: 20100129
  Receipt Date: 20090918
  Transmission Date: 20100710
  Serious: No
  Sender: FDA-Public Use
  Company Number: US-ABBOTT-09P-163-0598440-00

PATIENT
  Sex: Female
  Weight: 90.8 kg

DRUGS (18)
  1. HUMIRA [Suspect]
     Indication: CROHN'S DISEASE
     Dosage: 160 MG LOADING DOSE
     Dates: start: 20090917
  2. ASTILIN [Concomitant]
     Indication: DRUG USE FOR UNKNOWN INDICATION
     Dosage: 2 SPRAY
     Route: 045
  3. FLONASE [Concomitant]
     Indication: DRUG USE FOR UNKNOWN INDICATION
     Dosage: 2 SPRAY
     Route: 045
  4. ADVIR DISC [Concomitant]
     Indication: DRUG USE FOR UNKNOWN INDICATION
     Dosage: 1 PUFF
  5. ZOPINEX [Concomitant]
     Indication: DRUG USE FOR UNKNOWN INDICATION
  6. CIPRO [Concomitant]
     Indication: DRUG USE FOR UNKNOWN INDICATION
  7. LEXAPRO [Concomitant]
     Indication: DEPRESSION
  8. NEXIUM [Concomitant]
     Indication: DRUG USE FOR UNKNOWN INDICATION
  9. TRAZODONE HCL [Concomitant]
     Indication: DRUG USE FOR UNKNOWN INDICATION
     Route: 048
  10. HYDROXYZINE [Concomitant]
     Indication: DRUG USE FOR UNKNOWN INDICATION
  11. ATIVAN [Concomitant]
     Indication: DRUG USE FOR UNKNOWN INDICATION
  12. ZERTEC [Concomitant]
     Indication: DRUG USE FOR UNKNOWN INDICATION
  13. BENADRYL [Concomitant]
     Indication: DRUG USE FOR UNKNOWN INDICATION
  14. M.V.I. [Concomitant]
     Indication: DRUG USE FOR UNKNOWN INDICATION
  15. CALTRATE 600+D [Concomitant]
     Indication: DRUG USE FOR UNKNOWN INDICATION
  16. CANBERRY [Concomitant]
     Indication: DRUG USE FOR UNKNOWN INDICATION
  17. FLAX SEED OIL [Concomitant]
     Indication: DRUG USE FOR UNKNOWN INDICATION
  18. VIT D [Concomitant]
     Indication: DRUG USE FOR UNKNOWN INDICATION

REACTIONS (2)
  - DRUG DOSE OMISSION [None]
  - WRONG TECHNIQUE IN DRUG USAGE PROCESS [None]
